FAERS Safety Report 4430583-7 (Version None)
Quarter: 2004Q3

REPORT INFORMATION
  Report Type: 
  Country: None (occurrence: None)
  Receive Date: 20040818
  Receipt Date: 20040806
  Transmission Date: 20050211
  Serious: Yes (Other)
  Sender: FDA-Public Use
  Company Number: 2004053546

PATIENT
  Sex: Male

DRUGS (1)
  1. FELDENE [Suspect]
     Indication: NECK PAIN
     Dosage: 20 MG (20 MG, 1 IN 1 D), ORAL
     Route: 048
     Dates: start: 20040601, end: 20040601

REACTIONS (2)
  - CONJUNCTIVITIS [None]
  - MUCOSAL INFLAMMATION [None]
